FAERS Safety Report 8072081-8 (Version None)
Quarter: 2012Q1

REPORT INFORMATION
  Report Type: 
  Country: None (occurrence: None)
  Receive Date: 20120126
  Receipt Date: 20120118
  Transmission Date: 20120608
  Serious: Yes (Other)
  Sender: FDA-Public Use
  Company Number: US-CELGENEUS-163-20785-12011890

PATIENT
  Sex: Male

DRUGS (2)
  1. THALOMID [Suspect]
     Indication: MULTIPLE MYELOMA
     Route: 048
  2. VELCADE [Concomitant]
     Indication: MULTIPLE MYELOMA
     Route: 065

REACTIONS (4)
  - NEUROPATHY PERIPHERAL [None]
  - FRACTURE [None]
  - MULTIPLE MYELOMA [None]
  - PAIN [None]
